FAERS Safety Report 19264311 (Version 1)
Quarter: 2021Q2

REPORT INFORMATION
  Report Type: Spontaneous
  Country: US (occurrence: US)
  Receive Date: 20210516
  Receipt Date: 20210516
  Transmission Date: 20210717
  Serious: Yes (Other)
  Sender: FDA-Public Use
  Company Number: None

PATIENT
  Age: 55 Year
  Sex: Female
  Weight: 126 kg

DRUGS (1)
  1. CAPZASIN HP ARTHRITIS PAIN RELIEF [Suspect]
     Active Substance: CAPSAICIN
     Indication: PAIN IN EXTREMITY
     Route: 061
     Dates: start: 20210514, end: 20210516

REACTIONS (2)
  - Osteoarthritis [None]
  - Screaming [None]

NARRATIVE: CASE EVENT DATE: 20210516
